FAERS Safety Report 7362949-X (Version None)
Quarter: 2011Q1

REPORT INFORMATION
  Report Type: 
  Country: None (occurrence: None)
  Receive Date: 20110321
  Receipt Date: 20110315
  Transmission Date: 20110831
  Serious: No
  Sender: FDA-Public Use
  Company Number: US-BIOGENIDEC-2011BI009945

PATIENT
  Sex: Female

DRUGS (4)
  1. AVONEX [Concomitant]
     Route: 030
     Dates: start: 20090708
  2. TYSABRI [Suspect]
     Route: 042
     Dates: start: 20100215
  3. TYSABRI [Suspect]
     Indication: MULTIPLE SCLEROSIS
     Route: 042
     Dates: start: 20061024, end: 20090410
  4. AVONEX [Concomitant]
     Indication: MULTIPLE SCLEROSIS
     Route: 030
     Dates: end: 20061004

REACTIONS (4)
  - FATIGUE [None]
  - DEPRESSION [None]
  - GASTROENTERITIS VIRAL [None]
  - PNEUMONIA [None]
